FAERS Safety Report 18289450 (Version 1)
Quarter: 2020Q3

REPORT INFORMATION
  Report Type: Spontaneous
  Country: US (occurrence: US)
  Receive Date: 20200921
  Receipt Date: 20200921
  Transmission Date: 20201103
  Serious: No
  Sender: FDA-Public Use
  Company Number: US-GILEAD-2020-0495219

PATIENT
  Sex: Female

DRUGS (9)
  1. HYDROXYZINE HYDROCHLORIDE. [Concomitant]
     Active Substance: HYDROXYZINE HYDROCHLORIDE
  2. AMITRIPTYLINE HYDROCHLORIDE. [Concomitant]
     Active Substance: AMITRIPTYLINE HYDROCHLORIDE
  3. IBUPROFEN. [Concomitant]
     Active Substance: IBUPROFEN
  4. ALBUTEROL [SALBUTAMOL] [Concomitant]
     Active Substance: ALBUTEROL
  5. BASAGLAR [Concomitant]
     Active Substance: INSULIN GLARGINE
  6. AMLODIPINE BESILATE [Concomitant]
     Active Substance: AMLODIPINE BESYLATE
  7. MONTELUKAST SODIUM. [Concomitant]
     Active Substance: MONTELUKAST SODIUM
  8. SOFOSBUVIR;VELPATASVIR [Suspect]
     Active Substance: SOFOSBUVIR\VELPATASVIR
     Indication: CHRONIC HEPATITIS C
     Dosage: 1 DOSAGE FORM, QD
     Route: 048
  9. METFORMIN HYDROCHLORIDE. [Concomitant]
     Active Substance: METFORMIN HYDROCHLORIDE

REACTIONS (2)
  - Product dose omission issue [Recovered/Resolved]
  - Headache [Recovered/Resolved]
